FAERS Safety Report 6109263-8 (Version None)
Quarter: 2009Q1

REPORT INFORMATION
  Report Type: 
  Country: None (occurrence: None)
  Receive Date: 20090306
  Receipt Date: 20090306
  Transmission Date: 20090719
  Serious: Yes (Hospitalization)
  Sender: FDA-Public Use
  Company Number: None

PATIENT
  Sex: Female
  Weight: 69 kg

DRUGS (1)
  1. NOLVADEX [Suspect]
     Dosage: 20 MG
     Dates: end: 20090305

REACTIONS (2)
  - BACK PAIN [None]
  - OVARIAN CYST [None]
